FAERS Safety Report 5809635-2 (Version None)
Quarter: 2008Q3

REPORT INFORMATION
  Report Type: 
  Country: None (occurrence: None)
  Receive Date: 20080711
  Receipt Date: 20080711
  Transmission Date: 20090109
  Serious: Yes (Disabling, Other)
  Sender: FDA-Public Use
  Company Number: None

PATIENT
  Sex: Female
  Weight: 70.3075 kg

DRUGS (2)
  1. ACTIQ [Suspect]
     Indication: BACK PAIN
     Dosage: 1 LOZENGE 5X DAY PO
     Route: 048
     Dates: start: 20060801, end: 20080711
  2. FENTANYL CITRATE [Suspect]

REACTIONS (2)
  - TOOTH DISORDER [None]
  - TOOTH HYPOPLASIA [None]
